FAERS Safety Report 4539336-2 (Version None)
Quarter: 2004Q4

REPORT INFORMATION
  Report Type: 
  Country: None (occurrence: None)
  Receive Date: 20041223
  Receipt Date: 20041217
  Transmission Date: 20050328
  Serious: Yes (Other)
  Sender: FDA-Public Use
  Company Number: 200414233BCC

PATIENT
  Age: 67 Year
  Sex: Female
  Weight: 65.7716 kg

DRUGS (5)
  1. MILK OF MAGNESIA TAB [Suspect]
     Indication: ANTACID THERAPY
     Dosage: SEE IMAGE
     Route: 048
     Dates: start: 20040825
  2. MILK OF MAGNESIA TAB [Suspect]
     Indication: LAXATIVE SUPPORTIVE CARE
     Dosage: SEE IMAGE
     Route: 048
     Dates: start: 20040825
  3. MILK OF MAGNESIA TAB [Suspect]
     Indication: ANTACID THERAPY
     Dosage: SEE IMAGE
     Route: 048
     Dates: start: 20040827
  4. MILK OF MAGNESIA TAB [Suspect]
     Indication: LAXATIVE SUPPORTIVE CARE
     Dosage: SEE IMAGE
     Route: 048
     Dates: start: 20040827
  5. ESTROGENS [Concomitant]

REACTIONS (2)
  - HYPERTENSION [None]
  - MOVEMENT DISORDER [None]
